FAERS Safety Report 23811470 (Version 1)
Quarter: 2024Q2

REPORT INFORMATION
  Report Type: Spontaneous
  Country: CA (occurrence: CA)
  Receive Date: 20240503
  Receipt Date: 20240503
  Transmission Date: 20240716
  Serious: Yes (Other)
  Sender: FDA-Public Use
  Company Number: CA-CELLTRION INC.-2024CA010021

PATIENT

DRUGS (10)
  1. INFLECTRA [Suspect]
     Active Substance: INFLIXIMAB-DYYB
     Indication: Ankylosing spondylitis
     Dosage: 420 MG, EVERY 6 WEEKS
     Route: 042
     Dates: start: 20240405
  2. ACETAMINOPHEN [Concomitant]
     Active Substance: ACETAMINOPHEN
     Indication: Pain
     Dosage: 1 DF, 1X/DAY (DOSE WAS UNKNOWN)
     Route: 065
  3. CELEBREX [Concomitant]
     Active Substance: CELECOXIB
     Dosage: 400 MG, 1X/DAY
     Route: 065
  4. ENBREL [Concomitant]
     Active Substance: BENZYL ALCOHOL\ETANERCEPT
     Dosage: 1 DF, 1X/DAY (DOSE WAS UNKNOWN)
     Route: 065
  5. GABAPENTIN [Concomitant]
     Active Substance: GABAPENTIN
     Indication: Pain
     Dosage: 100 MG, 1X/DAY (MORNING)
     Route: 065
  6. GABAPENTIN [Concomitant]
     Active Substance: GABAPENTIN
     Indication: Complex regional pain syndrome
  7. MIRTAZAPINE [Concomitant]
     Active Substance: MIRTAZAPINE
     Dosage: 15 MG, 1X/DAY
     Route: 065
  8. LIDOCAINE [Concomitant]
     Active Substance: LIDOCAINE
     Dosage: 1 DF, 1X/DAY (DOSE WAS UNKNOWN)
     Route: 065
  9. TRAMADOL [Concomitant]
     Active Substance: TRAMADOL\TRAMADOL HYDROCHLORIDE
     Indication: Pain
     Dosage: 1 DF, 1X/DAY (DOSE WAS UNKNOWN, PRN)
     Route: 065
  10. TRAMADOL HYDROCHLORIDE [Concomitant]
     Active Substance: TRAMADOL HYDROCHLORIDE
     Dosage: 1 DF, 1X/DAY (300 MG, 100 MG AM, 200 MG PM)
     Route: 065

REACTIONS (1)
  - Cataract [Unknown]
